FAERS Safety Report 9059383 (Version 2)
Quarter: 2013Q1

REPORT INFORMATION
  Report Type: Spontaneous
  Country: US (occurrence: US)
  Receive Date: 20130211
  Receipt Date: 20130213
  Transmission Date: 20140127
  Serious: No
  Sender: FDA-Public Use
  Company Number: US-GLAXOSMITHKLINE-A1007842A

PATIENT
  Age: 52 Year
  Sex: Male

DRUGS (8)
  1. ADVAIR [Suspect]
     Indication: CHRONIC OBSTRUCTIVE PULMONARY DISEASE
     Dosage: 1PUFF TWICE PER DAY
     Route: 055
     Dates: start: 20130104, end: 20130201
  2. VENTOLIN [Suspect]
     Indication: CHRONIC OBSTRUCTIVE PULMONARY DISEASE
     Route: 055
  3. PREDNISONE [Concomitant]
  4. SPIRIVA [Concomitant]
  5. ENALAPRIL [Concomitant]
  6. LASIX [Concomitant]
  7. POTASSIUM [Concomitant]
  8. OMEGA 3 [Concomitant]

REACTIONS (10)
  - Palpitations [Recovering/Resolving]
  - Dizziness [Recovering/Resolving]
  - Discomfort [Recovering/Resolving]
  - Accidental overdose [Recovered/Resolved]
  - Dyspnoea [Unknown]
  - Blood pressure increased [Unknown]
  - Treatment noncompliance [Unknown]
  - Dry mouth [Unknown]
  - Cardiovascular disorder [Unknown]
  - Dyspepsia [Unknown]
